FAERS Safety Report 9733716 (Version 3)
Quarter: 2014Q1

REPORT INFORMATION
  Report Type: Report from Study
  Country: US (occurrence: US)
  Receive Date: 20131205
  Receipt Date: 20140305
  Transmission Date: 20141002
  Serious: Yes (Other)
  Sender: FDA-Public Use
  Company Number: US-RB-030576-11

PATIENT
  Age: 52 Year
  Sex: Female

DRUGS (9)
  1. SUBOXONE FILM [Suspect]
     Indication: DRUG DEPENDENCE
     Dosage: SUBOXONE FILM
     Route: 060
     Dates: start: 2010, end: 2010
  2. SUBOXONE FILM [Suspect]
     Dosage: SUBOXONE FILM; CUTTING TO REDUCE DOSE
     Route: 060
     Dates: start: 2010, end: 201311
  3. SUBOXONE FILM [Suspect]
     Indication: PAIN
     Dosage: SUBOXONE FILM; REDUCE DOSAGE UNDER 1 MG  BY CUTTING
     Route: 060
     Dates: start: 201311, end: 20131119
  4. CYMBALTA [Concomitant]
     Indication: DEPRESSION
     Dosage: DOSING DETAILS UNKNOWN
     Route: 048
  5. NEURONTIN [Concomitant]
     Indication: AFFECTIVE DISORDER
     Dosage: DOSING DETAILS UNKNOWN
     Route: 048
  6. NEURONTIN [Concomitant]
     Indication: AFFECTIVE DISORDER
     Dosage: DOSING DETAILS UNKNOWN
     Route: 048
  7. CELEBREX [Concomitant]
     Indication: ARTHRITIS
     Dosage: DOSING DETAILS UNKNOWN
     Route: 048
  8. CLONAZEPAM [Concomitant]
     Indication: ANXIETY
     Dosage: UNKNOWN DOSAGE DETAILS
     Route: 048
  9. WELLBUTRIN [Concomitant]
     Indication: DEPRESSION
     Dosage: UNKNOWN DOSAGE DETAILS
     Route: 048

REACTIONS (14)
  - Abnormal dreams [Recovered/Resolved]
  - Dyspnoea [Recovered/Resolved]
  - Pallor [Recovered/Resolved]
  - Fatigue [Recovered/Resolved]
  - Wrong technique in drug usage process [Recovered/Resolved]
  - Depression [Recovered/Resolved]
  - Drug withdrawal syndrome [Not Recovered/Not Resolved]
  - Intentional underdose [Recovered/Resolved]
  - Drug withdrawal syndrome [Not Recovered/Not Resolved]
  - Decreased appetite [Not Recovered/Not Resolved]
  - Headache [Not Recovered/Not Resolved]
  - Pain [Not Recovered/Not Resolved]
  - Suicidal ideation [Recovered/Resolved]
  - Fibromyalgia [Not Recovered/Not Resolved]
